FAERS Safety Report 6416592-7 (Version None)
Quarter: 2009Q4

REPORT INFORMATION
  Report Type: 
  Country: None (occurrence: None)
  Receive Date: 20091027
  Receipt Date: 20080926
  Transmission Date: 20100525
  Serious: Yes (Other)
  Sender: FDA-Public Use
  Company Number: US-ASTRAZENECA-2007UW01111

PATIENT
  Age: 58 Year
  Sex: Male

DRUGS (6)
  1. CRESTOR [Suspect]
     Route: 048
     Dates: start: 20050531, end: 20050901
  2. ATORVASTATIN [Suspect]
  3. ATORVASTATIN [Suspect]
  4. AZATHIOPRINE [Concomitant]
  5. PREDNISONE TAB [Concomitant]
  6. PYRIDOSTIGMINE BROMIDE [Concomitant]

REACTIONS (1)
  - MYASTHENIA GRAVIS [None]
